FAERS Safety Report 10420473 (Version 1)
Quarter: 2014Q3

REPORT INFORMATION
  Report Type: Spontaneous
  Country: US (occurrence: None)
  Receive Date: 20140710
  Receipt Date: 20140710
  Transmission Date: 20150326
  Serious: Yes (Other)
  Sender: FDA-Public Use
  Company Number: 152229

PATIENT
  Sex: Female

DRUGS (1)
  1. ADENOSINE INJ. USP 3MG/ML (2ML) - BEDFORD LABS, INC. [Suspect]
     Active Substance: ADENOSINE
     Indication: CARDIAC STRESS TEST

REACTIONS (2)
  - Accidental overdose [None]
  - Cardiac arrest [None]

NARRATIVE: CASE EVENT DATE: 20131125
